FAERS Safety Report 15507610 (Version 3)
Quarter: 2018Q4

REPORT INFORMATION
  Report Type: Report from Study
  Country: CA (occurrence: CA)
  Receive Date: 20181016
  Receipt Date: 20181127
  Transmission Date: 20190205
  Serious: Yes (Other)
  Sender: FDA-Public Use
  Company Number: CA-SA-2017SA056574

PATIENT
  Age: 42 Year
  Sex: Female

DRUGS (7)
  1. METHYLPREDNISOLONE. [Concomitant]
     Active Substance: METHYLPREDNISOLONE
     Indication: PREMEDICATION
     Dosage: 1 G,UNK
     Route: 042
     Dates: start: 20170327, end: 20170329
  2. BENADRYL [Concomitant]
     Active Substance: DIPHENHYDRAMINE HYDROCHLORIDE
     Indication: PREMEDICATION
     Dosage: 50 MG,PRN
     Route: 048
     Dates: start: 20170327
  3. REACTINE [CETIRIZINE HYDROCHLORIDE] [Concomitant]
     Active Substance: CETIRIZINE HYDROCHLORIDE
     Indication: PREMEDICATION
     Dosage: 10 MG,UNK
     Route: 048
     Dates: start: 20170327, end: 20170329
  4. RANITIDINE. [Concomitant]
     Active Substance: RANITIDINE
     Indication: PREMEDICATION
     Dosage: 150 MG,UNK
     Route: 048
     Dates: start: 20170327, end: 20170329
  5. ALEMTUZUMAB [Suspect]
     Active Substance: ALEMTUZUMAB
     Indication: RELAPSING-REMITTING MULTIPLE SCLEROSIS
     Dosage: 12 MG,QD
     Route: 041
     Dates: start: 20170327, end: 20170329
  6. TYLENOL 8HR [Concomitant]
     Active Substance: ACETAMINOPHEN
     Indication: PREMEDICATION
     Dosage: 975 MG,PRN
     Route: 048
     Dates: start: 20170327
  7. ACICLOVIR [Concomitant]
     Active Substance: ACYCLOVIR
     Indication: PREMEDICATION
     Dosage: 200 MG,BID
     Route: 048
     Dates: start: 20170327

REACTIONS (29)
  - Urine abnormality [Recovered/Resolved]
  - Haemoglobin urine present [Not Recovered/Not Resolved]
  - Thyroid disorder [Not Recovered/Not Resolved]
  - Hypothyroidism [Unknown]
  - Protein urine present [Recovered/Resolved]
  - Headache [Not Recovered/Not Resolved]
  - Fatigue [Not Recovered/Not Resolved]
  - Feeling abnormal [Not Recovered/Not Resolved]
  - Hyperthyroidism [Not Recovered/Not Resolved]
  - Blood creatinine decreased [Recovered/Resolved]
  - Red cell distribution width increased [Recovered/Resolved]
  - Paraesthesia [Recovered/Resolved]
  - Back pain [Recovered/Resolved]
  - Pain in extremity [Recovered/Resolved]
  - Epistaxis [Recovered/Resolved]
  - Monocyte count increased [Not Recovered/Not Resolved]
  - Menorrhagia [Recovered/Resolved]
  - Nausea [Not Recovered/Not Resolved]
  - Lymphocyte count decreased [Recovered/Resolved]
  - White blood cell count decreased [Recovered/Resolved]
  - Bone pain [Recovered/Resolved]
  - Chest pain [Recovered/Resolved]
  - Unevaluable event [Not Recovered/Not Resolved]
  - Blood thyroid stimulating hormone increased [Recovered/Resolved]
  - Blood thyroid stimulating hormone decreased [Recovered/Resolved]
  - Red blood cell count increased [Recovered/Resolved]
  - White blood cells urine positive [Not Recovered/Not Resolved]
  - Red blood cells urine positive [Recovered/Resolved]
  - Platelet count decreased [Recovered/Resolved]

NARRATIVE: CASE EVENT DATE: 20170327
